FAERS Safety Report 24377743 (Version 1)
Quarter: 2024Q3

REPORT INFORMATION
  Report Type: Spontaneous
  Country: US (occurrence: US)
  Receive Date: 20240930
  Receipt Date: 20240930
  Transmission Date: 20241017
  Serious: No
  Sender: ELI LILLY AND CO
  Company Number: US-ELI_LILLY_AND_COMPANY-US202409018020

PATIENT
  Sex: Male

DRUGS (2)
  1. HUMALOG [Suspect]
     Active Substance: INSULIN LISPRO
     Indication: Product used for unknown indication
     Dosage: 8 U, BID (MORNING/DINNER)
     Route: 065
     Dates: start: 20240922, end: 20240927
  2. HUMALOG [Suspect]
     Active Substance: INSULIN LISPRO
     Dosage: 7 U, SINGLE (AFTERNOON)
     Route: 065
     Dates: start: 20240922, end: 20240927

REACTIONS (1)
  - Blood glucose increased [Unknown]
